FAERS Safety Report 18737121 (Version 1)
Quarter: 2021Q1

REPORT INFORMATION
  Report Type: Report from Study
  Country: US (occurrence: US)
  Receive Date: 20210113
  Receipt Date: 20210113
  Transmission Date: 20210419
  Serious: Yes (Other)
  Sender: FDA-Public Use
  Company Number: NVSC2021US004613

PATIENT
  Sex: Female

DRUGS (1)
  1. ENTRESTO [Suspect]
     Active Substance: SACUBITRIL\VALSARTAN
     Indication: PRODUCT USED FOR UNKNOWN INDICATION
     Dosage: 50 MG, BID (24.26 MG) (HAD BEEN ON ENTRESTO FOR 3 WEEKS)
     Route: 048

REACTIONS (5)
  - Pneumonia [Unknown]
  - Fatigue [Recovering/Resolving]
  - Cardiac disorder [Unknown]
  - Blood sodium increased [Unknown]
  - Blood potassium increased [Unknown]
